FAERS Safety Report 13418501 (Version 3)
Quarter: 2017Q3

REPORT INFORMATION
  Report Type: Report from Study
  Country: US (occurrence: US)
  Receive Date: 20170406
  Receipt Date: 20170823
  Transmission Date: 20171127
  Serious: Yes (Other)
  Sender: FDA-Public Use
  Company Number: US-ACTELION-A-US2015-113663

PATIENT
  Age: 51 Year
  Sex: Male
  Weight: 81.63 kg

DRUGS (6)
  1. OPSUMIT [Suspect]
     Active Substance: MACITENTAN
     Indication: PULMONARY HYPERTENSION
     Dosage: 10 MG, QD
     Route: 048
     Dates: start: 20151204
  2. COUMADIN [Concomitant]
     Active Substance: WARFARIN SODIUM
  3. ADCIRCA [Concomitant]
     Active Substance: TADALAFIL
  4. OPSUMIT [Suspect]
     Active Substance: MACITENTAN
     Dosage: 10 MG, QD
     Route: 048
  5. REVATIO [Concomitant]
     Active Substance: SILDENAFIL CITRATE
  6. TYVASO [Concomitant]
     Active Substance: TREPROSTINIL

REACTIONS (23)
  - Palpitations [Unknown]
  - Device battery issue [Unknown]
  - Dyspnoea [Unknown]
  - Diarrhoea [Unknown]
  - Blood pressure decreased [Unknown]
  - Nasal congestion [Unknown]
  - Flushing [Unknown]
  - Abdominal pain [Unknown]
  - Nausea [Unknown]
  - Chest pain [Unknown]
  - Vomiting [Unknown]
  - Secretion discharge [Unknown]
  - Dyspepsia [Unknown]
  - Feeling cold [Unknown]
  - Bradycardia [Unknown]
  - Bronchitis [Unknown]
  - Dyspnoea exertional [Unknown]
  - Throat irritation [Unknown]
  - Weight increased [Unknown]
  - Fluid retention [Unknown]
  - Syncope [Unknown]
  - Lethargy [Unknown]
  - Productive cough [Unknown]

NARRATIVE: CASE EVENT DATE: 20160423
